FAERS Safety Report 8672574 (Version 2)
Quarter: 2012Q4

REPORT INFORMATION
  Report Type: 
  Country: US (occurrence: US)
  Receive Date: 20120719
  Receipt Date: 20120918
  Transmission Date: 20130627
  Serious: Yes (Hospitalization)
  Sender: FDA-Public Use
  Company Number: US-BAYER-2012-071261

PATIENT
  Age: 23 Year
  Sex: Female
  Weight: 112.2 kg

DRUGS (1)
  1. YAZ [Suspect]
     Indication: MENSTRUAL CYCLE MANAGEMENT
     Dosage: UNK
     Dates: start: 20091202, end: 20110406

REACTIONS (6)
  - Deep vein thrombosis [Recovered/Resolved]
  - Pulmonary embolism [Not Recovered/Not Resolved]
  - Thrombophlebitis superficial [Recovered/Resolved]
  - Injury [Not Recovered/Not Resolved]
  - Pain [None]
  - Pain in extremity [Recovered/Resolved]
